FAERS Safety Report 17998586 (Version 2)
Quarter: 2024Q1

REPORT INFORMATION
  Report Type: Spontaneous
  Country: US (occurrence: US)
  Receive Date: 20200709
  Receipt Date: 20240202
  Transmission Date: 20240410
  Serious: No
  Sender: FDA-Public Use
  Company Number: US-BIOGENIDEC-2013BI121178

PATIENT
  Age: 50 Year
  Sex: Female

DRUGS (15)
  1. AVONEX [Suspect]
     Active Substance: INTERFERON BETA-1A
     Indication: Multiple sclerosis
     Route: 050
     Dates: start: 20121106, end: 20121127
  2. AVONEX [Suspect]
     Active Substance: INTERFERON BETA-1A
  3. AVONEX [Suspect]
     Active Substance: INTERFERON BETA-1A
  4. AVONEX [Suspect]
     Active Substance: INTERFERON BETA-1A
  5. AVONEX PEN [Suspect]
     Active Substance: INTERFERON BETA-1A
     Indication: Multiple sclerosis
     Route: 050
     Dates: start: 20130107, end: 20150723
  6. AVONEX PEN [Suspect]
     Active Substance: INTERFERON BETA-1A
  7. AVONEX PEN [Suspect]
     Active Substance: INTERFERON BETA-1A
  8. AVONEX PEN [Suspect]
     Active Substance: INTERFERON BETA-1A
  9. TYLENOL [Concomitant]
     Active Substance: ACETAMINOPHEN
     Route: 050
  10. LEVOTHYROXINE SODIUM [Concomitant]
     Active Substance: LEVOTHYROXINE SODIUM
     Indication: Product used for unknown indication
     Route: 050
  11. VITAMIN D [Concomitant]
     Active Substance: VITAMIN D NOS
     Indication: Product used for unknown indication
     Route: 050
  12. TRAZODONE HCL [Concomitant]
     Active Substance: TRAZODONE HYDROCHLORIDE
     Indication: Product used for unknown indication
     Route: 050
  13. OMEPRAZOLE [Concomitant]
     Active Substance: OMEPRAZOLE
     Indication: Product used for unknown indication
     Route: 050
  14. RISPERDAL [Concomitant]
     Active Substance: RISPERIDONE
     Indication: Product used for unknown indication
     Route: 050
  15. VALTREX [Concomitant]
     Active Substance: VALACYCLOVIR HYDROCHLORIDE
     Indication: Product used for unknown indication
     Route: 050

REACTIONS (11)
  - Gastrointestinal disorder [Not Recovered/Not Resolved]
  - Multiple sclerosis [Not Recovered/Not Resolved]
  - Visual impairment [Not Recovered/Not Resolved]
  - Gait disturbance [Not Recovered/Not Resolved]
  - Memory impairment [Not Recovered/Not Resolved]
  - Retinal scar [Not Recovered/Not Resolved]
  - Cataract [Not Recovered/Not Resolved]
  - Optic neuritis [Not Recovered/Not Resolved]
  - Tremor [Unknown]
  - Injury associated with device [Unknown]
  - Injection site bruising [Unknown]

NARRATIVE: CASE EVENT DATE: 20131201
